FAERS Safety Report 8556746 (Version 5)
Quarter: 2014Q1

REPORT INFORMATION
  Report Type: Spontaneous
  Country: TR (occurrence: TR)
  Receive Date: 20120511
  Receipt Date: 20140109
  Transmission Date: 20141002
  Serious: Yes (Hospitalization, Other)
  Sender: FDA-Public Use
  Company Number: TR-AMGEN-TURSP2012028290

PATIENT
  Age: 64 Year
  Sex: Female
  Weight: 80 kg

DRUGS (2)
  1. ENBREL [Suspect]
     Indication: RHEUMATOID ARTHRITIS
     Dosage: 50 MG, WEEKLY
     Route: 058
     Dates: start: 20110608, end: 20120416
  2. ENBREL [Suspect]
     Dosage: 50 MG, WEEKLY
     Route: 058

REACTIONS (12)
  - Hypersensitivity [Recovered/Resolved]
  - Cough [Recovered/Resolved]
  - Pain in extremity [Not Recovered/Not Resolved]
  - Amnesia [Not Recovered/Not Resolved]
  - Angiogram [Recovered/Resolved]
  - Fall [Recovered/Resolved]
  - Scan abnormal [Not Recovered/Not Resolved]
  - Walking disability [Not Recovered/Not Resolved]
  - Local swelling [Not Recovered/Not Resolved]
  - Joint swelling [Not Recovered/Not Resolved]
  - Pain [Not Recovered/Not Resolved]
  - Secretion discharge [Recovered/Resolved]
